FAERS Safety Report 17294147 (Version 1)
Quarter: 2020Q1

REPORT INFORMATION
  Report Type: Spontaneous
  Country: US (occurrence: US)
  Receive Date: 20200118
  Receipt Date: 20200118
  Transmission Date: 20200409
  Serious: Yes (Other)
  Sender: FDA-Public Use
  Company Number: None

PATIENT
  Age: 31 Year
  Sex: Female
  Weight: 92 kg

DRUGS (2)
  1. VITAMIN D3 [Concomitant]
     Active Substance: CHOLECALCIFEROL
  2. NEXPLANON [Suspect]
     Active Substance: ETONOGESTREL
     Dates: start: 20180306, end: 20200117

REACTIONS (2)
  - Therapeutic product ineffective [None]
  - Pregnancy with implant contraceptive [None]
